FAERS Safety Report 20650643 (Version 2)
Quarter: 2022Q2

REPORT INFORMATION
  Report Type: Report from Study
  Country: US (occurrence: US)
  Receive Date: 20220329
  Receipt Date: 20220412
  Transmission Date: 20220721
  Serious: Yes (Life-Threatening)
  Sender: FDA-Public Use
  Company Number: US-TAKEDA-2022TUS019158

PATIENT
  Age: 44 Year
  Sex: Female

DRUGS (5)
  1. ICATIBANT [Suspect]
     Active Substance: ICATIBANT ACETATE
     Indication: Hereditary angioedema
     Dosage: 30MG/3ML, Q6HR
     Route: 058
     Dates: start: 20220218
  2. ICATIBANT [Suspect]
     Active Substance: ICATIBANT ACETATE
     Indication: Hereditary angioedema
     Dosage: 30MG/3ML, Q6HR
     Route: 058
     Dates: start: 20220218
  3. ICATIBANT [Suspect]
     Active Substance: ICATIBANT ACETATE
     Dosage: 30MG/3ML, AS NEEDED
     Route: 058
     Dates: start: 20220218
  4. ICATIBANT [Suspect]
     Active Substance: ICATIBANT ACETATE
     Dosage: 30MG/3ML, AS NEEDED
     Route: 058
     Dates: start: 20220218
  5. TAKHZYRO [Concomitant]
     Active Substance: LANADELUMAB-FLYO
     Indication: Product used for unknown indication
     Route: 065

REACTIONS (5)
  - Hereditary angioedema [Recovered/Resolved]
  - Product availability issue [Recovered/Resolved]
  - Pyrexia [Recovered/Resolved]
  - Injection site reaction [Recovered/Resolved]
  - Headache [Recovered/Resolved]

NARRATIVE: CASE EVENT DATE: 20220219
